FAERS Safety Report 16275510 (Version 3)
Quarter: 2019Q4

REPORT INFORMATION
  Report Type: Spontaneous
  Country: US (occurrence: US)
  Receive Date: 20190506
  Receipt Date: 20191127
  Transmission Date: 20200122
  Serious: Yes (Other)
  Sender: FDA-Public Use
  Company Number: PHEH2019US018979

PATIENT
  Sex: Female

DRUGS (3)
  1. RIVASTIGMINE. [Suspect]
     Active Substance: RIVASTIGMINE
     Dosage: 13.3 MG, QD (PATCH 15 (CM2), 27 MG RIVASTIGMINE BASE)
     Route: 062
  2. RIVASTIGMINE. [Suspect]
     Active Substance: RIVASTIGMINE
     Indication: DEMENTIA
     Dosage: 9.5 MG QD (PATCH 10 (CM2), 18 MG RIVASTIGMINE BASE)
     Route: 062
  3. RIVASTIGMINE. [Suspect]
     Active Substance: RIVASTIGMINE
     Dosage: 4.6 MG QD (PATCH 5 (CM2), 9 MG RIVASTIGMINE BASE)
     Route: 062

REACTIONS (4)
  - Abdominal discomfort [Unknown]
  - Depression [Unknown]
  - Suicidal ideation [Unknown]
  - Dementia Alzheimer^s type [Unknown]
